FAERS Safety Report 13902525 (Version 2)
Quarter: 2017Q3

REPORT INFORMATION
  Report Type: Spontaneous
  Country: CA (occurrence: CA)
  Receive Date: 20170824
  Receipt Date: 20170907
  Transmission Date: 20171127
  Serious: Yes (Life-Threatening, Hospitalization, Disabling, Other)
  Sender: FDA-Public Use
  Company Number: CA-MACLEODS PHARMACEUTICALS US LTD-MAC2017005760

PATIENT

DRUGS (3)
  1. AMLODIPINE BESYLATE. [Suspect]
     Active Substance: AMLODIPINE BESYLATE
     Indication: PRODUCT USED FOR UNKNOWN INDICATION
     Dosage: 150 MG, SINGLE (TOTAL)
     Route: 048
  2. ESCITALOPRAM OXALATE. [Suspect]
     Active Substance: ESCITALOPRAM OXALATE
     Indication: PRODUCT USED FOR UNKNOWN INDICATION
     Dosage: 60 MG, SINGLE (TOTAL)
     Route: 048
  3. RISPERIDONE. [Suspect]
     Active Substance: RISPERIDONE
     Indication: PRODUCT USED FOR UNKNOWN INDICATION
     Dosage: 6 MG, SINGLE (TOTAL)
     Route: 048

REACTIONS (21)
  - Circulatory collapse [Recovered/Resolved]
  - Shock [Recovering/Resolving]
  - Blindness [Not Recovered/Not Resolved]
  - Optic atrophy [Not Recovered/Not Resolved]
  - Optic nerve infarction [Not Recovered/Not Resolved]
  - Hypokalaemia [Recovering/Resolving]
  - Visual impairment [Not Recovered/Not Resolved]
  - Electrocardiogram QT prolonged [Not Recovered/Not Resolved]
  - Pulmonary oedema [Recovered/Resolved]
  - Hypotension [Recovering/Resolving]
  - Depressed level of consciousness [Recovered/Resolved]
  - Altered state of consciousness [Recovering/Resolving]
  - Optic nerve injury [Not Recovered/Not Resolved]
  - Tachycardia [Recovering/Resolving]
  - Intentional overdose [Recovering/Resolving]
  - Toxicity to various agents [Not Recovered/Not Resolved]
  - Cerebral infarction [Not Recovered/Not Resolved]
  - Hyperdynamic left ventricle [Recovering/Resolving]
  - Condition aggravated [Recovering/Resolving]
  - Anuria [Recovered/Resolved]
  - Hypoglycaemia [Recovering/Resolving]
